FAERS Safety Report 22602012 (Version 1)
Quarter: 2023Q2

REPORT INFORMATION
  Report Type: Spontaneous
  Country: DE (occurrence: DE)
  Receive Date: 20230614
  Receipt Date: 20230614
  Transmission Date: 20230721
  Serious: Yes (Other)
  Sender: FDA-Public Use
  Company Number: DE-Covis Pharma Europe B.V.-2023COV01306

PATIENT
  Age: 76 Year
  Sex: Female

DRUGS (1)
  1. ACLIDINIUM BROMIDE [Suspect]
     Active Substance: ACLIDINIUM BROMIDE
     Indication: Chronic obstructive pulmonary disease

REACTIONS (2)
  - Pulmonary embolism [Unknown]
  - Product dose omission issue [Unknown]
